FAERS Safety Report 9778980 (Version 3)
Quarter: 2014Q1

REPORT INFORMATION
  Report Type: Report from Study
  Country: JP (occurrence: JP)
  Receive Date: 20131223
  Receipt Date: 20140217
  Transmission Date: 20141002
  Serious: Yes (Hospitalization)
  Sender: FDA-Public Use
  Company Number: JP-UCBSA-105071

PATIENT
  Age: 9 Year
  Sex: Female

DRUGS (9)
  1. E KEPPRA [Suspect]
     Indication: EPILEPSY
     Route: 048
     Dates: start: 20110804, end: 20111012
  2. E KEPPRA [Suspect]
     Indication: EPILEPSY
     Route: 048
     Dates: start: 20120301, end: 20121017
  3. E KEPPRA [Suspect]
     Indication: EPILEPSY
     Dosage: 600 MG
     Route: 048
     Dates: start: 20121018
  4. JAPANESE ENCEPHALITIS VACCINE [Suspect]
     Indication: PROPHYLAXIS
     Dosage: 0.5ML
     Route: 058
     Dates: start: 201109, end: 201109
  5. EXCEGRAN [Concomitant]
     Dosage: 100 MG
     Route: 048
     Dates: start: 2003
  6. PHENOBAL [Concomitant]
     Dosage: 25 MG
     Route: 048
     Dates: start: 2004
  7. FAMOTIDINE [Concomitant]
     Dosage: 18 MG
     Route: 048
     Dates: start: 2003
  8. GASMOTIN [Concomitant]
     Dosage: 3 MG
     Route: 048
     Dates: start: 2006
  9. CEFDITOREN PIVOXIL [Concomitant]
     Indication: PYREXIA
     Route: 048
     Dates: start: 20111004, end: 201110

REACTIONS (2)
  - Salivary hypersecretion [Recovering/Resolving]
  - Bronchitis [Recovered/Resolved]
